FAERS Safety Report 4664880-7 (Version None)
Quarter: 2005Q2

REPORT INFORMATION
  Report Type: 
  Country: None (occurrence: None)
  Receive Date: 20050517
  Receipt Date: 20050428
  Transmission Date: 20051028
  Serious: Yes (Hospitalization)
  Sender: FDA-Public Use
  Company Number: JP_050506487

PATIENT
  Age: 74 Year

DRUGS (2)
  1. GEMZAR [Suspect]
     Indication: NON-SMALL CELL LUNG CANCER
     Dosage: 1400 MG OTHER
     Dates: start: 20040415, end: 20040609
  2. NAVELBINE [Concomitant]

REACTIONS (1)
  - CARDIAC FAILURE [None]
